FAERS Safety Report 19292661 (Version 1)
Quarter: 2021Q2

REPORT INFORMATION
  Report Type: Spontaneous
  Country: US (occurrence: US)
  Receive Date: 20210524
  Receipt Date: 20210524
  Transmission Date: 20210717
  Serious: No
  Sender: FDA-Public Use
  Company Number: US-AMGEN-USASP2021076006

PATIENT
  Age: 77 Year
  Sex: Male

DRUGS (2)
  1. PROLIA [Suspect]
     Active Substance: DENOSUMAB
     Indication: PRODUCT USED FOR UNKNOWN INDICATION
     Dosage: UNK
     Route: 065
     Dates: start: 20210511
  2. PREDNISONE. [Concomitant]
     Active Substance: PREDNISONE
     Indication: CHONDROCALCINOSIS PYROPHOSPHATE
     Dosage: UNK

REACTIONS (3)
  - Arthralgia [Unknown]
  - Back pain [Unknown]
  - Appendix disorder [Unknown]

NARRATIVE: CASE EVENT DATE: 202105
